FAERS Safety Report 10070833 (Version 1)
Quarter: 2014Q2

REPORT INFORMATION
  Report Type: Spontaneous
  Country: FR (occurrence: FR)
  Receive Date: 20140410
  Receipt Date: 20140410
  Transmission Date: 20141212
  Serious: Yes (Hospitalization)
  Sender: FDA-Public Use
  Company Number: FR-TEVA-472398ISR

PATIENT
  Age: 16 Year
  Sex: Female

DRUGS (1)
  1. ANTADYS [Suspect]
     Indication: DYSMENORRHOEA
     Route: 048
     Dates: start: 20130315, end: 20130321

REACTIONS (4)
  - Hepatitis [Recovered/Resolved]
  - Pancreatitis [Recovered/Resolved]
  - Vomiting [Unknown]
  - Abdominal pain upper [Unknown]
